FAERS Safety Report 7191775-X (Version None)
Quarter: 2010Q4

REPORT INFORMATION
  Report Type: 
  Country: None (occurrence: None)
  Receive Date: 20101223
  Receipt Date: 20101222
  Transmission Date: 20110411
  Serious: Yes (Death, Life-Threatening, Hospitalization, Disabling, Other)
  Sender: FDA-Public Use
  Company Number: RU-BAYER-201047943GPV

PATIENT
  Sex: Male
  Weight: 65 kg

DRUGS (23)
  1. RIVAROXABAN [Interacting]
     Indication: ACUTE CORONARY SYNDROME
     Dosage: DOSAGE FORM: TABLET
     Route: 048
     Dates: start: 20100915, end: 20101112
  2. RIVAROXABAN [Interacting]
     Dosage: DOSAGE FORM: TABLET
     Dates: start: 20090619, end: 20100831
  3. ASPIRIN [Suspect]
     Indication: ACUTE CORONARY SYNDROME
     Dates: end: 20090617
  4. ASPIRIN [Interacting]
     Dates: end: 20090615
  5. ASPIRIN [Interacting]
     Dates: start: 20090618
  6. CLOPIDOGREL [Interacting]
     Indication: ACUTE CORONARY SYNDROME
  7. CLOPIDOGREL [Interacting]
     Dates: end: 20090615
  8. ISOSORBIDE DINITRATE [Concomitant]
  9. HEPARIN [Concomitant]
  10. CLEXANE [Concomitant]
  11. ENAP [Concomitant]
  12. METOPROLOL TARTRATE [Concomitant]
  13. RANITIDINE HCL [Concomitant]
  14. MORPHINE [Concomitant]
  15. MAGNESIUM [Concomitant]
  16. OMEZ [Concomitant]
  17. DROPERIDOL [Concomitant]
  18. PRESTARIUM [Concomitant]
  19. ZOCOR [Concomitant]
  20. GIK SOLUTION [Concomitant]
  21. METOPROLOL SUCCINATE [Concomitant]
  22. VITAMIN B6 [Concomitant]
  23. VITAMIN B-12 [Concomitant]

REACTIONS (3)
  - HAEMORRHAGIC STROKE [None]
  - ISCHAEMIC STROKE [None]
  - SUDDEN DEATH [None]
